FAERS Safety Report 8154238-0 (Version None)
Quarter: 2012Q1

REPORT INFORMATION
  Report Type: 
  Country: None (occurrence: None)
  Receive Date: 20120103
  Receipt Date: 20111122
  Transmission Date: 20120608
  Serious: No
  Sender: FDA-Public Use
  Company Number: AE-2011-002825

PATIENT
  Age: 68 Year
  Sex: Male
  Weight: 74.8435 kg

DRUGS (6)
  1. RIBAVIRIN [Concomitant]
  2. LISINOPRIL [Concomitant]
  3. METFORMIN HCL [Concomitant]
  4. AMLODIPINE [Concomitant]
  5. PEGINTERFERON (PEGINTERFERON ALFA-2A) [Concomitant]
  6. INCIVEK [Suspect]
     Dosage: 2250 MG (750 MG,1 IN 8 HR),ORAL
     Route: 048
     Dates: start: 20111007

REACTIONS (8)
  - ARTHRALGIA [None]
  - DECREASED APPETITE [None]
  - NAUSEA [None]
  - ANORECTAL DISCOMFORT [None]
  - PAIN [None]
  - INSOMNIA [None]
  - PYREXIA [None]
  - DIARRHOEA [None]
